FAERS Safety Report 6115146-X (Version None)
Quarter: 2009Q1

REPORT INFORMATION
  Report Type: 
  Country: None (occurrence: None)
  Receive Date: 20090313
  Receipt Date: 20090303
  Transmission Date: 20090719
  Serious: Yes (Hospitalization)
  Sender: FDA-Public Use
  Company Number: US-PFIZER INC-2009167946

PATIENT
  Age: 55 Year
  Sex: Female

DRUGS (2)
  1. ARGATROBAN [Suspect]
     Dosage: UNK
     Route: 042
     Dates: start: 20090205
  2. CUMADIN [Concomitant]
     Dosage: UNK

REACTIONS (1)
  - DRUG RESISTANCE [None]
